FAERS Safety Report 6019721-2 (Version None)
Quarter: 2008Q4

REPORT INFORMATION
  Report Type: 
  Country: None (occurrence: None)
  Receive Date: 20081222
  Receipt Date: 20081120
  Transmission Date: 20090506
  Serious: Yes (Hospitalization)
  Sender: FDA-Public Use
  Company Number: US-WYE-H06911708

PATIENT
  Sex: Female

DRUGS (5)
  1. PRISTIQ [Suspect]
     Indication: DEPRESSION
     Dosage: OVERDOSE AMOUNT UNSPECIFIED, ORAL
     Route: 048
  2. ZOLOFT [Concomitant]
  3. ALCOHOL (ETHANOL) [Concomitant]
  4. NAPROXEN [Concomitant]
  5. INDERAL [Concomitant]

REACTIONS (1)
  - OVERDOSE [None]
